FAERS Safety Report 25348921 (Version 1)
Quarter: 2025Q2

REPORT INFORMATION
  Report Type: Spontaneous
  Country: CN (occurrence: CN)
  Receive Date: 20250522
  Receipt Date: 20250522
  Transmission Date: 20250717
  Serious: Yes (Other)
  Sender: BAXTER
  Company Number: None

PATIENT
  Age: 54 Year
  Sex: Female
  Weight: 60 kg

DRUGS (4)
  1. CYCLOPHOSPHAMIDE [Suspect]
     Active Substance: CYCLOPHOSPHAMIDE
     Indication: Breast cancer female
     Dosage: 0.984 G, QD
     Route: 041
     Dates: start: 20250423, end: 20250423
  2. SODIUM CHLORIDE [Suspect]
     Active Substance: SODIUM CHLORIDE
     Dosage: 80 ML, QD, 0.9% (WITH PACLITAXEL) IVGTT
     Route: 041
     Dates: start: 20250423, end: 20250423
  3. SODIUM CHLORIDE [Suspect]
     Active Substance: SODIUM CHLORIDE
     Dosage: 500 ML, QD, 0.9% (WITH CYCLOPHOSPHAMIDE) IVGTT
     Route: 041
     Dates: start: 20250423, end: 20250423
  4. PACLITAXEL [Suspect]
     Active Substance: PACLITAXEL
     Indication: Breast cancer female
     Dosage: 400 MG, QD
     Route: 041
     Dates: start: 20250423, end: 20250423

REACTIONS (4)
  - Drug eruption [Recovering/Resolving]
  - Papule [Unknown]
  - Erythema [Unknown]
  - Pruritus [Unknown]

NARRATIVE: CASE EVENT DATE: 20250426
